FAERS Safety Report 23218154 (Version 1)
Quarter: 2023Q4

REPORT INFORMATION
  Report Type: Spontaneous
  Country: US (occurrence: US)
  Receive Date: 20231122
  Receipt Date: 20231122
  Transmission Date: 20240110
  Serious: Yes (Other)
  Sender: FDA-Public Use
  Company Number: US-MYLANLABS-2023M1124021

PATIENT
  Age: 43 Year
  Sex: Female

DRUGS (1)
  1. METHADONE [Suspect]
     Active Substance: METHADONE HYDROCHLORIDE
     Indication: Back pain
     Dosage: 195 MILLIGRAM, QD (HIGH DOSE THERAPY)
     Route: 065

REACTIONS (3)
  - Adrenal insufficiency [Recovering/Resolving]
  - Overdose [Recovering/Resolving]
  - Hypoglycaemia [Recovering/Resolving]
